FAERS Safety Report 10340906 (Version 2)
Quarter: 2014Q3

REPORT INFORMATION
  Report Type: Spontaneous
  Country: US (occurrence: US)
  Receive Date: 20140724
  Receipt Date: 20140724
  Transmission Date: 20150326
  Serious: No
  Sender: FDA-Public Use
  Company Number: US-MYLANLABS-2013S1014959

PATIENT
  Age: 63 Year
  Sex: Female

DRUGS (3)
  1. LEVOTHYROXINE SODIUM TABLETS, USP [Suspect]
     Active Substance: LEVOTHYROXINE SODIUM
     Indication: HYPOTHYROIDISM
     Route: 048
     Dates: start: 20070823, end: 20080411
  2. LEVOTHYROXINE SODIUM TABLETS, USP [Suspect]
     Active Substance: LEVOTHYROXINE SODIUM
     Indication: AUTOIMMUNE THYROIDITIS
     Route: 048
     Dates: start: 20070823, end: 20080411
  3. MULTIVITAMIN [Concomitant]
     Active Substance: VITAMINS

REACTIONS (8)
  - Blood pressure systolic increased [Recovered/Resolved]
  - Burning sensation [Recovered/Resolved]
  - Muscle tightness [Recovered/Resolved]
  - Nodule [Recovered/Resolved]
  - Paraesthesia [Recovered/Resolved]
  - Irritability [Recovered/Resolved]
  - Cough [Recovered/Resolved]
  - Insomnia [Recovered/Resolved]

NARRATIVE: CASE EVENT DATE: 2007
